FAERS Safety Report 18931859 (Version 1)
Quarter: 2021Q1

REPORT INFORMATION
  Report Type: Report from Study
  Country: US (occurrence: US)
  Receive Date: 20210224
  Receipt Date: 20210224
  Transmission Date: 20210420
  Serious: No
  Sender: FDA-Public Use
  Company Number: US-AGIOS-2102US02532

PATIENT

DRUGS (3)
  1. TIBSOVO [Suspect]
     Active Substance: IVOSIDENIB
     Indication: MALIGNANT MELANOMA
     Dosage: 250 MILLIGRAM, 2 TABLETS (500), QD
     Dates: start: 20201229
  2. TIBSOVO [Suspect]
     Active Substance: IVOSIDENIB
     Indication: CHOLANGIOCARCINOMA
     Dosage: 250 MILLIGRAM, 2 TABLETS (500), QD
  3. TIBSOVO [Suspect]
     Active Substance: IVOSIDENIB
     Indication: METASTASES TO LIVER
     Dosage: 250 MILLIGRAM, QD

REACTIONS (2)
  - Incorrect dose administered [Recovered/Resolved]
  - Off label use [Unknown]

NARRATIVE: CASE EVENT DATE: 20201229
